FAERS Safety Report 25855463 (Version 1)
Quarter: 2025Q3

REPORT INFORMATION
  Report Type: Report from Study
  Country: US (occurrence: US)
  Receive Date: 20250927
  Receipt Date: 20250927
  Transmission Date: 20251020
  Serious: Yes (Hospitalization)
  Sender: JAZZ
  Company Number: US-JAZZ PHARMACEUTICALS-2025-US-021133

PATIENT
  Sex: Female

DRUGS (7)
  1. EPIDIOLEX [Suspect]
     Active Substance: CANNABIDIOL
     Indication: Epilepsy
     Dosage: 1 MILLILITER, BID
     Dates: start: 20250603
  2. EPIDIOLEX [Suspect]
     Active Substance: CANNABIDIOL
     Dosage: 1 MILLILITER, BID
     Dates: start: 20250603
  3. CETIRIZINE [Concomitant]
     Active Substance: CETIRIZINE HYDROCHLORIDE
  4. CIMETIDINE [Concomitant]
     Active Substance: CIMETIDINE
  5. GLYCOPYRROLATE [Concomitant]
     Active Substance: GLYCOPYRROLATE
  6. LEVOCARNITINE [Concomitant]
     Active Substance: LEVOCARNITINE
  7. VIGABATRIN [Concomitant]
     Active Substance: VIGABATRIN

REACTIONS (4)
  - Hospitalisation [Unknown]
  - Illness [Unknown]
  - Vomiting [Unknown]
  - Product dose omission issue [Unknown]
